FAERS Safety Report 22029208 (Version 1)
Quarter: 2023Q1

REPORT INFORMATION
  Report Type: Spontaneous
  Country: US (occurrence: None)
  Receive Date: 20230220
  Receipt Date: 20230220
  Transmission Date: 20230417
  Serious: Yes (Death)
  Sender: FDA-Public Use
  Company Number: None

PATIENT
  Age: 42 Year
  Sex: Female

DRUGS (5)
  1. VOTRIENT [Suspect]
     Active Substance: PAZOPANIB HYDROCHLORIDE
     Indication: Malignant connective tissue neoplasm
     Dosage: FREQUENCY: TAKE 4 TABLETS BY MOUTH ONE TIME DAILY ON EMPTY STOMACH?
     Route: 048
     Dates: start: 20230130, end: 20230203
  2. VOTRIENT [Suspect]
     Active Substance: PAZOPANIB HYDROCHLORIDE
     Indication: Soft tissue sarcoma
     Dosage: OTHER FREQUENCY : Q ON EMPTY STOMACH;?
     Route: 048
  3. ACETAMIN [Concomitant]
  4. LORAZEPAM [Concomitant]
     Active Substance: LORAZEPAM
  5. MULTIVITAMIN TAB ADLT 50+ [Concomitant]

REACTIONS (1)
  - Death [None]

NARRATIVE: CASE EVENT DATE: 20230203
